FAERS Safety Report 7085142-7 (Version None)
Quarter: 2010Q4

REPORT INFORMATION
  Report Type: 
  Country: None (occurrence: None)
  Receive Date: 20101028
  Receipt Date: 20090929
  Transmission Date: 20110411
  Serious: Yes (Other)
  Sender: FDA-Public Use
  Company Number: 2009SP027954

PATIENT
  Sex: Male

DRUGS (2)
  1. PEG-INTRON [Suspect]
     Indication: HEPATITIS
     Dosage: QW;SC
     Route: 058
     Dates: start: 20020101
  2. RIBAVIRIN [Suspect]
     Indication: HEPATITIS
     Dates: start: 20020101

REACTIONS (10)
  - ABASIA [None]
  - ASTHENIA [None]
  - BARRETT'S OESOPHAGUS [None]
  - CHILLS [None]
  - DEPRESSION [None]
  - DRUG INEFFECTIVE [None]
  - HEPATIC CIRRHOSIS [None]
  - HEPATIC NEOPLASM MALIGNANT [None]
  - INFLUENZA LIKE ILLNESS [None]
  - NAUSEA [None]
